FAERS Safety Report 13938443 (Version 1)
Quarter: 2017Q3

REPORT INFORMATION
  Report Type: Spontaneous
  Country: CA (occurrence: CA)
  Receive Date: 20170905
  Receipt Date: 20170905
  Transmission Date: 20171127
  Serious: Yes (Life-Threatening)
  Sender: FDA-Public Use
  Company Number: CA-MYLANLABS-2017M1053797

PATIENT
  Age: 66 Year
  Sex: Female
  Weight: 54 kg

DRUGS (7)
  1. ABILIFY [Interacting]
     Active Substance: ARIPIPRAZOLE
     Indication: DEPRESSION
     Dosage: UNK
  2. RISPERDAL [Interacting]
     Active Substance: RISPERIDONE
     Indication: DEPRESSION
     Dosage: UNK
  3. RISPERDAL [Interacting]
     Active Substance: RISPERIDONE
     Indication: ANXIETY
  4. EPIVAL [Suspect]
     Active Substance: DIVALPROEX SODIUM
     Indication: DEPRESSION
     Dosage: UNK
  5. EPIVAL [Suspect]
     Active Substance: DIVALPROEX SODIUM
     Indication: ANXIETY
     Dosage: UNK
  6. CELEXA [Interacting]
     Active Substance: CITALOPRAM HYDROBROMIDE
     Indication: PRODUCT USED FOR UNKNOWN INDICATION
     Dosage: UNK
  7. ABILIFY [Interacting]
     Active Substance: ARIPIPRAZOLE
     Indication: ANXIETY

REACTIONS (4)
  - Hypersomnia [Unknown]
  - Drug interaction [Unknown]
  - Weight increased [Unknown]
  - Alopecia [Unknown]
